FAERS Safety Report 10648521 (Version 1)
Quarter: 2014Q4

REPORT INFORMATION
  Report Type: Spontaneous
  Country: GB (occurrence: GB)
  Receive Date: 20141212
  Receipt Date: 20141212
  Transmission Date: 20150529
  Serious: Yes (Other)
  Sender: FDA-Public Use
  Company Number: GB-ASTRAZENECA-2014SE93509

PATIENT
  Age: 45 Year
  Sex: Female

DRUGS (1)
  1. ZOLADEX [Suspect]
     Active Substance: GOSERELIN ACETATE
     Route: 058
     Dates: start: 2013, end: 2014

REACTIONS (10)
  - Hostility [Unknown]
  - Depressed mood [Not Recovered/Not Resolved]
  - Impulsive behaviour [Unknown]
  - Mood swings [Unknown]
  - Psychiatric symptom [Unknown]
  - Irritability [Unknown]
  - Hallucination, auditory [Unknown]
  - Abulia [Unknown]
  - Memory impairment [Not Recovered/Not Resolved]
  - Paranoia [Unknown]

NARRATIVE: CASE EVENT DATE: 2014
